FAERS Safety Report 7518226-7 (Version None)
Quarter: 2011Q2

REPORT INFORMATION
  Report Type: 
  Country: None (occurrence: None)
  Receive Date: 20110531
  Receipt Date: 20110531
  Transmission Date: 20111010
  Serious: Yes (Hospitalization)
  Sender: FDA-Public Use
  Company Number: None

PATIENT
  Sex: Male
  Weight: 204.1187 kg

DRUGS (1)
  1. DEFINITY [Suspect]
     Indication: IMAGING PROCEDURE
     Dosage: CC OF DILUTED DEFINITY IN NS PRN INTRAVENOUS BOLUS
     Route: 040
     Dates: start: 20110524, end: 20110524

REACTIONS (7)
  - FEELING HOT [None]
  - ERYTHEMA [None]
  - DYSPNOEA [None]
  - MALAISE [None]
  - HYPOTENSION [None]
  - NAUSEA [None]
  - DIZZINESS [None]
